FAERS Safety Report 10072223 (Version 1)
Quarter: 2014Q2

REPORT INFORMATION
  Report Type: Report from Study
  Country: BR (occurrence: BR)
  Receive Date: 20140411
  Receipt Date: 20140411
  Transmission Date: 20141212
  Serious: Yes (Other)
  Sender: FDA-Public Use
  Company Number: PHHY2014BR043420

PATIENT
  Age: 84 Year
  Sex: Female
  Weight: 96 kg

DRUGS (3)
  1. DIOVAN [Suspect]
     Indication: HYPERTENSION
     Dosage: 1 DF, (160 MG) IN THE MORNING
     Route: 048
  2. ATENSINA [Suspect]
     Indication: HYPERTENSION
     Dosage: 1 DF, (0,1 UNIT UNSPECIFIED)
     Route: 048
  3. BETAHISTINE HYDROCHLORIDE [Concomitant]
     Indication: LABYRINTHITIS
     Dosage: (12 TO 12 HOURS)

REACTIONS (10)
  - Breast cancer [Recovering/Resolving]
  - Balance disorder [Recovering/Resolving]
  - Movement disorder [Recovering/Resolving]
  - Nervous system disorder [Recovering/Resolving]
  - Muscular weakness [Recovering/Resolving]
  - Limb discomfort [Recovering/Resolving]
  - Muscle spasms [Recovering/Resolving]
  - Vomiting [Recovering/Resolving]
  - Dizziness [Recovering/Resolving]
  - Memory impairment [Recovering/Resolving]
